FAERS Safety Report 16542349 (Version 1)
Quarter: 2019Q3

REPORT INFORMATION
  Report Type: Spontaneous
  Country: GB (occurrence: GB)
  Receive Date: 20190708
  Receipt Date: 20190708
  Transmission Date: 20191004
  Serious: Yes (Other)
  Sender: FDA-Public Use
  Company Number: GB-009507513-1907GBR001139

PATIENT
  Age: 29 Year
  Sex: Female
  Weight: 60 kg

DRUGS (1)
  1. MARVELON [Suspect]
     Active Substance: DESOGESTREL\ETHINYL ESTRADIOL
     Indication: CONTRACEPTION
     Route: 048
     Dates: start: 20190530, end: 20190609

REACTIONS (3)
  - Depressed mood [Not Recovered/Not Resolved]
  - Breast pain [Recovering/Resolving]
  - Crying [Not Recovered/Not Resolved]

NARRATIVE: CASE EVENT DATE: 20190602
